FAERS Safety Report 5416721-8 (Version None)
Quarter: 2007Q3

REPORT INFORMATION
  Report Type: 
  Country: None (occurrence: None)
  Receive Date: 20070816
  Receipt Date: 20070813
  Transmission Date: 20080115
  Serious: Yes (Life-Threatening, Hospitalization, Other)
  Sender: FDA-Public Use
  Company Number: A0669823A

PATIENT
  Age: 33 Year
  Sex: Male

DRUGS (4)
  1. LAMICTAL [Suspect]
     Indication: BIPOLAR DISORDER
     Dosage: 200MG PER DAY
     Route: 048
  2. WELLBUTRIN XL [Suspect]
     Dosage: 300MG PER DAY
     Route: 048
  3. LEXAPRO [Concomitant]
  4. TRAZODONE HCL [Concomitant]

REACTIONS (2)
  - GUN SHOT WOUND [None]
  - SUICIDE ATTEMPT [None]
